FAERS Safety Report 9069305 (Version 3)
Quarter: 2013Q3

REPORT INFORMATION
  Report Type: Report from Study
  Country: DE (occurrence: DE)
  Receive Date: 20130215
  Receipt Date: 20130807
  Transmission Date: 20140515
  Serious: Yes (Hospitalization, Other)
  Sender: FDA-Public Use
  Company Number: DE-ROCHE-1180842

PATIENT
  Sex: Female

DRUGS (5)
  1. RANIBIZUMAB [Suspect]
     Indication: DIABETIC RETINAL OEDEMA
     Dosage: AS NEEDED
     Route: 050
     Dates: start: 20121025
  2. RANIBIZUMAB [Suspect]
     Route: 050
     Dates: start: 20121101
  3. RANIBIZUMAB [Suspect]
     Route: 050
     Dates: start: 20121122
  4. RANIBIZUMAB [Suspect]
     Route: 050
     Dates: start: 20130110
  5. RANIBIZUMAB [Suspect]
     Route: 050
     Dates: start: 20130307

REACTIONS (3)
  - Intraocular pressure test abnormal [Not Recovered/Not Resolved]
  - Narrow anterior chamber angle [Not Recovered/Not Resolved]
  - Visual acuity reduced [Recovered/Resolved]
